FAERS Safety Report 4990908-0 (Version None)
Quarter: 2006Q2

REPORT INFORMATION
  Report Type: 
  Country: None (occurrence: None)
  Receive Date: 20060503
  Receipt Date: 20060426
  Transmission Date: 20061013
  Serious: Yes (Life-Threatening, Hospitalization)
  Sender: FDA-Public Use
  Company Number: GB-MERCK-0604GBR00147

PATIENT
  Sex: Female
  Weight: 150 kg

DRUGS (10)
  1. ZOCOR [Suspect]
     Route: 048
  2. ERYTHROMYCIN [Suspect]
     Route: 048
     Dates: start: 20060325, end: 20060403
  3. DIHYDROCODEINE [Concomitant]
     Route: 048
  4. AMITRIPTYLINE HYDROCHLORIDE [Concomitant]
     Route: 048
  5. BUMETANIDE [Concomitant]
     Route: 048
  6. LEVOTHYROXINE SODIUM [Concomitant]
     Route: 048
  7. LISINOPRIL [Concomitant]
     Route: 048
  8. METFORMIN [Concomitant]
     Route: 048
  9. ROSIGLITAZONE MALEATE [Concomitant]
     Route: 048
  10. PROCHLORPERAZINE [Concomitant]
     Route: 048

REACTIONS (4)
  - CONFUSIONAL STATE [None]
  - MALAISE [None]
  - RENAL FAILURE ACUTE [None]
  - RHABDOMYOLYSIS [None]
